FAERS Safety Report 8258862-6 (Version None)
Quarter: 2012Q2

REPORT INFORMATION
  Report Type: 
  Country: None (occurrence: None)
  Receive Date: 20120404
  Receipt Date: 20120329
  Transmission Date: 20120825
  Serious: Yes (Death, Other)
  Sender: FDA-Public Use
  Company Number: TW-CELGENEUS-153-CCAZA-12030474

PATIENT
  Sex: Male
  Weight: 53.5 kg

DRUGS (85)
  1. CODEINE PHOSPHATE [Concomitant]
     Dosage: 60 MILLIGRAM
     Route: 048
     Dates: start: 20120123, end: 20120124
  2. CODEINE PHOSPHATE [Concomitant]
     Dosage: 30 MILLIGRAM
     Route: 048
     Dates: start: 20120206, end: 20120212
  3. ASTOMIN [Concomitant]
     Dosage: 10 MILLIGRAM
     Route: 048
     Dates: start: 20120123, end: 20120124
  4. ASTOMIN [Concomitant]
     Dosage: 10 MILLIGRAM
     Route: 048
     Dates: start: 20120206, end: 20120207
  5. SODIUM CHLORIDE [Concomitant]
     Dosage: 500 CC
     Route: 041
     Dates: start: 20120216, end: 20120217
  6. NEXIUM [Concomitant]
     Route: 041
     Dates: start: 20120201, end: 20120202
  7. POTASSIUM CHLORIDE [Concomitant]
     Dosage: 10 CC
     Route: 041
     Dates: start: 20120201, end: 20120202
  8. POTASSIUM CHLORIDE [Concomitant]
     Dosage: 20 CC
     Route: 041
     Dates: start: 20120217, end: 20120220
  9. POTASSIUM CHLORIDE [Concomitant]
     Dosage: 20 CC
     Route: 041
     Dates: start: 20120217, end: 20120218
  10. HEPAN [Concomitant]
     Dosage: 0.5 TAB
     Route: 048
     Dates: start: 20120204, end: 20120212
  11. SOLU-CORTEF [Concomitant]
     Dosage: 100 MILLIGRAM
     Route: 041
     Dates: start: 20120211, end: 20120212
  12. SOLU-CORTEF [Concomitant]
     Dosage: 100 MILLIGRAM
     Route: 041
     Dates: start: 20120211, end: 20120213
  13. SOLU-CORTEF [Concomitant]
     Dosage: 100 MILLIGRAM
     Route: 041
     Dates: start: 20120215, end: 20120216
  14. CODEINE PHOSPHATE [Concomitant]
     Dosage: 60 MILLIGRAM
     Route: 048
     Dates: start: 20120130, end: 20120206
  15. TRAMADOL HYDROCHLORIDE [Concomitant]
     Dosage: 0.5 AMP
     Route: 041
     Dates: start: 20120124, end: 20120206
  16. AMINOL-V [Concomitant]
     Route: 041
     Dates: start: 20120204, end: 20120207
  17. LASIX [Concomitant]
     Dosage: 1 AMP/20MG/2ML
     Route: 041
     Dates: start: 20120204, end: 20120205
  18. SOLU-CORTEF [Concomitant]
     Dosage: 100 MILLIGRAM
     Route: 041
     Dates: start: 20120214, end: 20120215
  19. SOLU-CORTEF [Concomitant]
     Dosage: 100 MILLIGRAM
     Route: 041
     Dates: start: 20120222, end: 20120223
  20. LIPOVENOES [Concomitant]
     Dosage: 1 BOT
     Route: 041
     Dates: start: 20120214, end: 20120214
  21. SOLU-MEDROL [Concomitant]
     Dosage: 125 MILLIGRAM
     Route: 041
     Dates: start: 20120222, end: 20120223
  22. COMBIVENT [Concomitant]
     Dosage: 1 VIAL
     Route: 030
     Dates: start: 20120222, end: 20120222
  23. DOXABEN [Concomitant]
     Dosage: 2 MILLIGRAM
     Route: 048
     Dates: start: 20120123, end: 20120124
  24. CODEINE PHOSPHATE [Concomitant]
     Dosage: 30 MILLIGRAM
     Route: 048
     Dates: start: 20120212, end: 20120214
  25. LIPOFUNDIN MCT/LCT [Concomitant]
     Dosage: 1 BOT
     Route: 041
     Dates: start: 20120124, end: 20120203
  26. LEVOFLOXACIN [Concomitant]
     Dosage: 750 MILLIGRAM
     Route: 041
     Dates: start: 20120127, end: 20120128
  27. DEXTROSE [Concomitant]
     Dosage: 1000 CC
     Route: 041
     Dates: start: 20120130, end: 20120212
  28. SEROQUEL [Concomitant]
     Dosage: 25 MILLIGRAM
     Route: 048
     Dates: start: 20120131, end: 20120212
  29. MYCAMINE [Concomitant]
     Dosage: 100 MILLIGRAM
     Route: 041
     Dates: start: 20120130, end: 20120213
  30. POTASSIUM CHLORIDE [Concomitant]
     Dosage: 20 CC
     Route: 041
     Dates: start: 20120201, end: 20120203
  31. LASIX [Concomitant]
     Dosage: 1 AMP/20MG/2ML
     Route: 041
     Dates: start: 20120214, end: 20120215
  32. TRANSAMINE CAP [Concomitant]
     Dosage: 1 AMP
     Route: 041
     Dates: start: 20120213, end: 20120218
  33. TRANSAMINE CAP [Concomitant]
     Dosage: 1 AMP
     Route: 041
     Dates: start: 20120214, end: 20120215
  34. TRANSAMINE CAP [Concomitant]
     Dosage: 2 AMP
     Route: 041
     Dates: start: 20120218, end: 20120223
  35. DEPYRETIN [Concomitant]
     Dosage: 1 TAB
     Route: 048
     Dates: start: 20120219, end: 20120223
  36. LEVOPHED [Concomitant]
     Dosage: 2 AMP
     Route: 041
     Dates: start: 20120222, end: 20120223
  37. DOPAMINE HYDROCHLORIDE [Concomitant]
     Dosage: 400 MILLIGRAM
     Route: 041
     Dates: start: 20120223, end: 20120223
  38. LEVOFLOXACIN [Concomitant]
     Dosage: 500 MILLIGRAM
     Route: 041
     Dates: start: 20120213, end: 20120223
  39. SEROQUEL [Concomitant]
     Dosage: 0.5
     Route: 048
     Dates: start: 20120130, end: 20120131
  40. MEPAM [Concomitant]
     Dosage: 1000 MILLIGRAM
     Route: 041
     Dates: start: 20120130, end: 20120213
  41. NEXIUM [Concomitant]
     Route: 041
     Dates: start: 20120201, end: 20120203
  42. AMINOL-V [Concomitant]
     Route: 041
     Dates: start: 20120220, end: 20120223
  43. LASIX [Concomitant]
     Dosage: 0.5 AMP/20MG/2ML
     Route: 041
     Dates: start: 20120220, end: 20120221
  44. FLUR DI FEN [Concomitant]
     Dosage: X4
     Route: 065
     Dates: start: 20120210, end: 20120217
  45. SOLU-CORTEF [Concomitant]
     Dosage: 50 MILLIGRAM
     Route: 041
     Dates: start: 20120216, end: 20120217
  46. SODIUM CHLORIDE [Concomitant]
     Dosage: 500 CC
     Route: 041
     Dates: start: 20120130, end: 20120131
  47. SODIUM CHLORIDE [Concomitant]
     Dosage: 500 CC
     Route: 041
     Dates: start: 20120217, end: 20120218
  48. LASIX [Concomitant]
     Dosage: 1 AMP/20MG/2ML
     Route: 041
     Dates: start: 20120206, end: 20120207
  49. TYGACIL [Concomitant]
     Dosage: 100 MILLIGRAM
     Route: 041
     Dates: start: 20120213, end: 20120214
  50. ZINC OXIDE [Concomitant]
     Dosage: X1 TUB
     Dates: start: 20120216, end: 20120223
  51. VITAGEN [Concomitant]
     Dosage: 250CC
     Route: 041
     Dates: start: 20120222, end: 20120222
  52. AZACITIDINE [Suspect]
     Indication: ACUTE MYELOID LEUKAEMIA
     Dosage: 75 MILLIGRAM/SQ. METER
     Route: 058
     Dates: start: 20111216, end: 20111222
  53. DOXABEN [Concomitant]
     Dosage: 2 MILLIGRAM
     Route: 048
     Dates: start: 20120130, end: 20120212
  54. DOXABEN [Concomitant]
     Dosage: 2 MILLIGRAM
     Route: 048
     Dates: start: 20120206, end: 20120207
  55. CODEINE PHOSPHATE [Concomitant]
     Dosage: 30 MILLIGRAM
     Route: 048
     Dates: start: 20120206, end: 20120207
  56. LEVOFLOXACIN [Concomitant]
     Dosage: 750 MILLIGRAM
     Route: 041
     Dates: start: 20120127, end: 20120210
  57. MESYREL [Concomitant]
     Route: 048
     Dates: start: 20120129, end: 20120130
  58. SENOKOT [Concomitant]
     Dosage: 15 MILLIGRAM
     Route: 048
     Dates: start: 20120212, end: 20120215
  59. NEXIUM [Concomitant]
     Dosage: 1 TAB
     Route: 048
     Dates: start: 20120204, end: 20120205
  60. COLISTIN SULFATE [Concomitant]
     Route: 065
     Dates: start: 20120205, end: 20120206
  61. SOLU-CORTEF [Concomitant]
     Dosage: 100 MILLIGRAM
     Route: 041
     Dates: start: 20120219, end: 20120221
  62. SOLU-CORTEF [Concomitant]
     Dosage: 100 MILLIGRAM
     Route: 041
     Dates: start: 20120221, end: 20120222
  63. KATIMIN [Concomitant]
     Dosage: 1 AMP
     Route: 041
     Dates: start: 20120214, end: 20120215
  64. BININ-U [Concomitant]
     Dosage: 0.5 TAB
     Route: 048
     Dates: start: 20120216, end: 20120223
  65. PONCOLIN [Concomitant]
     Dosage: X1 BOT
     Route: 048
     Dates: start: 20120217, end: 20120218
  66. MEGEST [Concomitant]
     Dosage: X1 BOT
     Route: 048
     Dates: start: 20120218, end: 20120219
  67. AZACITIDINE [Suspect]
     Dosage: 50 MILLIGRAM/SQ. METER
     Route: 058
     Dates: start: 20120206, end: 20120212
  68. ASTOMIN [Concomitant]
     Dosage: 10 MILLIGRAM
     Route: 048
     Dates: start: 20120127, end: 20120210
  69. LEVOFLOXACIN [Concomitant]
     Dosage: 500 MILLIGRAM
     Route: 041
     Dates: start: 20120213, end: 20120214
  70. NEXIUM [Concomitant]
     Dosage: 1 TAB
     Route: 048
     Dates: start: 20120204, end: 20120215
  71. LASIX [Concomitant]
     Dosage: 1 AMP/20MG/2ML
     Route: 041
     Dates: start: 20120222, end: 20120223
  72. ALBUMIN (HUMAN) [Concomitant]
     Dosage: 1 BOTTLE
     Route: 041
     Dates: start: 20120207, end: 20120210
  73. TYGACIL [Concomitant]
     Route: 041
     Dates: start: 20120213, end: 20120223
  74. DISOLIN [Concomitant]
     Dosage: 0.5 AMP
     Route: 041
     Dates: start: 20120216, end: 20120223
  75. ALLERMIN [Concomitant]
     Dosage: 1 AMP
     Route: 041
     Dates: start: 20120122, end: 20120223
  76. NYSTATIN [Concomitant]
     Dosage: 1 CAP
     Route: 048
     Dates: start: 20120130, end: 20120223
  77. SENOKOT [Concomitant]
     Dosage: 15 MILLIGRAM
     Route: 048
     Dates: start: 20120131, end: 20120212
  78. POTASSIUM CHLORIDE [Concomitant]
     Dosage: 20 CC
     Route: 041
     Dates: start: 20120220, end: 20120220
  79. COLISTIN SULFATE [Concomitant]
     Route: 065
     Dates: start: 20120205, end: 20120213
  80. ALLEGRA [Concomitant]
     Route: 048
     Dates: start: 20120208, end: 20120218
  81. NEOMYCIN SULFATE TAB [Concomitant]
     Dosage: X1 TUB
     Route: 065
     Dates: start: 20120212, end: 20120223
  82. EPINEPHRINE [Concomitant]
     Dosage: 1 AMP
     Route: 065
     Dates: start: 20120213, end: 20120223
  83. LIPOVENOES [Concomitant]
     Dosage: 1 BOT
     Route: 041
     Dates: start: 20120214, end: 20120220
  84. VITAGEN [Concomitant]
     Dosage: 250CC
     Route: 041
     Dates: start: 20120222, end: 20120223
  85. MORPHINE [Concomitant]
     Dosage: 10 MILLIGRAM
     Route: 041
     Dates: start: 20120222, end: 20120223

REACTIONS (2)
  - NEUTROPENIA [None]
  - PNEUMONIA [None]
